APPROVED DRUG PRODUCT: NUTRILIPID 20%
Active Ingredient: SOYBEAN OIL
Strength: 20%
Dosage Form/Route: INJECTABLE;INJECTION
Application: N019531 | Product #002 | TE Code: AP
Applicant: B BRAUN MEDICAL INC
Approved: May 28, 1993 | RLD: Yes | RS: Yes | Type: RX